FAERS Safety Report 7657433-X (Version None)
Quarter: 2011Q3

REPORT INFORMATION
  Report Type: 
  Country: None (occurrence: None)
  Receive Date: 20110804
  Receipt Date: 20110728
  Transmission Date: 20111222
  Serious: Yes (Hospitalization)
  Sender: FDA-Public Use
  Company Number: US-MYLANLABS-2011S1015678

PATIENT
  Age: 54 Year
  Sex: Male
  Weight: 76.2 kg

DRUGS (7)
  1. NEURONTIN [Suspect]
     Indication: NEUROPATHY PERIPHERAL
     Dates: start: 20040101, end: 20090101
  2. CYMBALTA [Concomitant]
     Indication: MYALGIA
     Dosage: 30MG IN THE AM AND 60MG HS
  3. ALTACE [Concomitant]
     Indication: CARDIAC DISORDER
  4. LYRICA [Suspect]
     Indication: NEUROPATHY PERIPHERAL
     Route: 048
     Dates: start: 20090101
  5. LASIX [Suspect]
     Route: 048
  6. LASIX [Suspect]
     Route: 048
  7. LISINOPRIL [Suspect]
     Indication: CARDIAC DISORDER

REACTIONS (8)
  - CEREBROVASCULAR ACCIDENT [None]
  - WEIGHT INCREASED [None]
  - BLOOD POTASSIUM ABNORMAL [None]
  - BLOOD PRESSURE INCREASED [None]
  - BLOOD SODIUM DECREASED [None]
  - FLUID OVERLOAD [None]
  - BLOOD PRESSURE DECREASED [None]
  - CARDIAC FAILURE CONGESTIVE [None]
